FAERS Safety Report 6665849-3 (Version None)
Quarter: 2010Q2

REPORT INFORMATION
  Report Type: 
  Country: None (occurrence: None)
  Receive Date: 20100402
  Receipt Date: 20100323
  Transmission Date: 20101027
  Serious: Yes (Death)
  Sender: FDA-Public Use
  Company Number: US-PFIZER INC-2010028112

PATIENT
  Sex: Female

DRUGS (5)
  1. REVATIO [Suspect]
     Indication: PULMONARY ARTERIAL HYPERTENSION
     Dosage: 2 TABLETS TID
  2. REMODULIN [Concomitant]
     Indication: PULMONARY ARTERIAL HYPERTENSION
  3. BOSENTAN [Concomitant]
     Indication: PULMONARY ARTERIAL HYPERTENSION
  4. WARFARIN [Concomitant]
     Indication: PULMONARY ARTERIAL HYPERTENSION
  5. OXYGEN [Concomitant]
     Indication: PULMONARY ARTERIAL HYPERTENSION
     Route: 055

REACTIONS (2)
  - PULMONARY HYPERTENSION [None]
  - RIGHT VENTRICULAR FAILURE [None]
